FAERS Safety Report 9693027 (Version 3)
Quarter: 2014Q1

REPORT INFORMATION
  Report Type: Report from Study
  Country: US (occurrence: US)
  Receive Date: 20131118
  Receipt Date: 20140307
  Transmission Date: 20141002
  Serious: Yes (Other)
  Sender: FDA-Public Use
  Company Number: US-SA-2013SA098058

PATIENT
  Age: 72 Year
  Sex: Female

DRUGS (13)
  1. AUBAGIO [Suspect]
     Indication: MULTIPLE SCLEROSIS
     Route: 048
     Dates: start: 20130824
  2. ASA [Concomitant]
     Indication: PROPHYLAXIS
     Route: 065
     Dates: start: 2008
  3. AMPYRA [Concomitant]
     Indication: MULTIPLE SCLEROSIS
     Dates: start: 201207
  4. METFORMIN [Concomitant]
     Indication: TYPE 2 DIABETES MELLITUS
     Dosage: STRENGTH: 500 MG; 1 TO 2 PER DAY
     Dates: start: 2009
  5. LEVOTHYROXINE [Concomitant]
     Indication: THYROID DISORDER
     Route: 048
     Dates: start: 1999
  6. LIPITOR [Concomitant]
     Indication: BLOOD CHOLESTEROL
     Dosage: 10-20 MG/DAY
     Dates: start: 2008
  7. LIPITOR [Concomitant]
     Indication: INFLAMMATION
     Dosage: 10-20 MG/DAY
     Dates: start: 2008
  8. LIPITOR [Concomitant]
     Indication: HYPERLIPIDAEMIA
     Dosage: 10-20 MG/DAY
     Dates: start: 2008
  9. CALCIUM [Concomitant]
  10. AMBIEN [Concomitant]
     Indication: INSOMNIA
     Dosage: 10 MG; 1/2 TO 1 TABLET
     Dates: start: 2004
  11. ROPINIROLE [Concomitant]
     Indication: RESTLESS LEGS SYNDROME
     Dosage: STRENGTH: 0.25 MG; 1 TO 3 TABLETS AS NEEDED
     Dates: start: 2007
  12. VITAMIN D [Concomitant]
     Dosage: DOSE:1000 UNIT(S)
  13. FISH OIL [Concomitant]
     Dosage: 1200 MG; 4 TO 7 PER WEEK

REACTIONS (8)
  - Cardiac flutter [Recovered/Resolved]
  - Gastrointestinal disorder [Not Recovered/Not Resolved]
  - Salivary hypersecretion [Unknown]
  - Chest discomfort [Unknown]
  - Paraesthesia [Recovered/Resolved]
  - Drug dose omission [Unknown]
  - Relapsing-remitting multiple sclerosis [Recovered/Resolved]
  - Abdominal pain [Recovered/Resolved with Sequelae]
